FAERS Safety Report 8004950-9 (Version None)
Quarter: 2011Q4

REPORT INFORMATION
  Report Type: 
  Country: None (occurrence: None)
  Receive Date: 20111223
  Receipt Date: 20111216
  Transmission Date: 20120403
  Serious: Yes (Other)
  Sender: FDA-Public Use
  Company Number: AU-JNJFOC-20110910865

PATIENT
  Sex: Male

DRUGS (7)
  1. STELARA [Suspect]
     Route: 058
     Dates: start: 20100807, end: 20100807
  2. STELARA [Suspect]
     Route: 058
     Dates: start: 20110416, end: 20110416
  3. STELARA [Suspect]
     Route: 058
     Dates: start: 20111001
  4. STELARA [Suspect]
     Route: 058
     Dates: start: 20100710, end: 20100710
  5. STELARA [Suspect]
     Route: 058
     Dates: start: 20110709, end: 20110709
  6. STELARA [Suspect]
     Indication: PSORIASIS
     Route: 058
     Dates: start: 20101030, end: 20101030
  7. STELARA [Suspect]
     Route: 058
     Dates: start: 20110130, end: 20110130

REACTIONS (1)
  - VOCAL CORD POLYP [None]
